FAERS Safety Report 17552779 (Version 2)
Quarter: 2020Q1

REPORT INFORMATION
  Report Type: Spontaneous
  Country: PL (occurrence: PL)
  Receive Date: 20200318
  Receipt Date: 20200324
  Transmission Date: 20200409
  Serious: Yes (Life-Threatening, Hospitalization, Other)
  Sender: FDA-Public Use
  Company Number: PL-AUROBINDO-AUR-APL-2020-013131

PATIENT
  Age: 52 Year
  Sex: Female

DRUGS (6)
  1. DULOXETINE. [Interacting]
     Active Substance: DULOXETINE
     Indication: DECREASED IMMUNE RESPONSIVENESS
  2. LANSOPRAZOLE. [Suspect]
     Active Substance: LANSOPRAZOLE
     Indication: GASTROOESOPHAGEAL REFLUX DISEASE
     Dosage: 15 MILLIGRAM, ONCE A DAY
     Route: 048
  3. METOPROLOL. [Suspect]
     Active Substance: METOPROLOL
     Indication: SINUS TACHYCARDIA
     Dosage: 100 MILLIGRAM, ONCE A DAY
     Route: 065
  4. METOCLOPRAMIDE. [Suspect]
     Active Substance: METOCLOPRAMIDE
     Indication: GASTROOESOPHAGEAL REFLUX DISEASE
     Dosage: 30 MILLIGRAM, ONCE A DAY
     Route: 048
  5. DULOXETINE. [Interacting]
     Active Substance: DULOXETINE
     Indication: GENERALISED ANXIETY DISORDER
     Dosage: 30 MILLIGRAM, ONCE A DAY
     Route: 065
  6. DULOXETINE. [Interacting]
     Active Substance: DULOXETINE
     Indication: APATHY

REACTIONS (8)
  - Syncope [Unknown]
  - Bradycardia [Unknown]
  - Loss of consciousness [Unknown]
  - Drug interaction [Unknown]
  - Reflux gastritis [Unknown]
  - Presyncope [Unknown]
  - Dyspepsia [Unknown]
  - Abdominal pain upper [Unknown]
